FAERS Safety Report 4579896-9 (Version None)
Quarter: 2005Q1

REPORT INFORMATION
  Report Type: 
  Country: None (occurrence: None)
  Receive Date: 20050210
  Receipt Date: 20050125
  Transmission Date: 20050727
  Serious: Yes (Hospitalization)
  Sender: FDA-Public Use
  Company Number: 2004097804

PATIENT
  Age: 50 Year
  Sex: Female

DRUGS (3)
  1. CELEBREX [Suspect]
     Indication: LUNG NEOPLASM MALIGNANT
     Dosage: 800 MG(400 MG, 2 IN 1 D), ORAL
     Route: 048
     Dates: start: 20030702, end: 20031104
  2. VENLAFAXINE HCL [Suspect]
     Indication: DEPRESSION
     Dosage: 75 MG (75 MG,1 IN 1 D), ORAL
     Route: 048
  3. EPOETIN ALFA (EPOETIN ALFA) [Suspect]
     Indication: ANAEMIA OF CHRONIC DISEASE
     Dosage: 40000 I.U. (40000 I.U., 1D) SUBCUTANEOUS
     Route: 058
     Dates: start: 20031017

REACTIONS (1)
  - HYPERTENSION [None]
